FAERS Safety Report 6074394-8 (Version None)
Quarter: 2009Q1

REPORT INFORMATION
  Report Type: 
  Country: None (occurrence: None)
  Receive Date: 20090206
  Receipt Date: 20090123
  Transmission Date: 20090719
  Serious: Yes (Hospitalization)
  Sender: FDA-Public Use
  Company Number: 2009AL000559

PATIENT
  Age: 58 Year
  Sex: Female

DRUGS (10)
  1. FLUOXETINE [Suspect]
     Dosage: 60 MG
     Dates: start: 20071231
  2. RISPERIDONE [Concomitant]
  3. DIAZEPAM [Concomitant]
  4. HALOPERIDOL [Concomitant]
  5. DEPAKOTE [Concomitant]
  6. SIMVASTATIN [Concomitant]
  7. ZOPICLONE [Concomitant]
  8. PROCHLORPERAZINE [Concomitant]
  9. CLOMIPRAMINE HCL [Concomitant]
  10. SEROQUEL [Concomitant]

REACTIONS (17)
  - ANXIETY [None]
  - BALANCE DISORDER [None]
  - DEPRESSED MOOD [None]
  - DEPRESSION [None]
  - EUPHORIC MOOD [None]
  - EXTRASYSTOLES [None]
  - FEELING ABNORMAL [None]
  - GENERAL PHYSICAL HEALTH DETERIORATION [None]
  - HEART RATE IRREGULAR [None]
  - LIBIDO INCREASED [None]
  - MENTAL IMPAIRMENT [None]
  - NIGHTMARE [None]
  - ORTHOSTATIC HYPOTENSION [None]
  - PALPITATIONS [None]
  - SKIN EXFOLIATION [None]
  - SOMNOLENCE [None]
  - SUICIDAL IDEATION [None]
